FAERS Safety Report 13725067 (Version 2)
Quarter: 2017Q3

REPORT INFORMATION
  Report Type: Spontaneous
  Country: US (occurrence: US)
  Receive Date: 20170706
  Receipt Date: 20170803
  Transmission Date: 20171127
  Serious: No
  Sender: FDA-Public Use
  Company Number: US-PFIZER INC-2017287793

PATIENT
  Age: 50 Year
  Sex: Male
  Weight: 93 kg

DRUGS (3)
  1. SILDENAFIL CITRATE. [Suspect]
     Active Substance: SILDENAFIL CITRATE
     Dosage: 60 MG, DAILY, (3 TABLETS A DAY)
     Dates: start: 20170419, end: 20170503
  2. SILDENAFIL CITRATE. [Suspect]
     Active Substance: SILDENAFIL CITRATE
     Indication: ERECTILE DYSFUNCTION
     Dosage: 40 MG, DAILY, (2 TABLETS A DAY)
     Dates: start: 20170411, end: 20170419
  3. AMITRIPTYLINE [Concomitant]
     Active Substance: AMITRIPTYLINE
     Indication: MUSCLE TWITCHING
     Dosage: 50 MG, 1X/DAY

REACTIONS (2)
  - Drug ineffective for unapproved indication [Unknown]
  - Intentional product misuse [Unknown]

NARRATIVE: CASE EVENT DATE: 201704
